FAERS Safety Report 10197502 (Version 1)
Quarter: 2014Q2

REPORT INFORMATION
  Report Type: Spontaneous
  Country: US (occurrence: US)
  Receive Date: 20140527
  Receipt Date: 20140527
  Transmission Date: 20141212
  Serious: No
  Sender: FDA-Public Use
  Company Number: US-NOVEN-14US008903

PATIENT
  Age: 63 Year
  Sex: Female

DRUGS (1)
  1. MINIVELLE [Suspect]
     Indication: HOT FLUSH
     Dosage: 0.1 MG, X2, Q 3-4 DAYS
     Route: 062
     Dates: start: 201302, end: 201305

REACTIONS (6)
  - Feeling abnormal [Recovered/Resolved]
  - Blood oestrogen decreased [Recovered/Resolved]
  - Wrong technique in drug usage process [Recovered/Resolved]
  - Hot flush [Recovered/Resolved]
  - Drug ineffective [Recovered/Resolved]
  - Product quality issue [Recovered/Resolved]
